FAERS Safety Report 14885083 (Version 1)
Quarter: 2018Q2

REPORT INFORMATION
  Report Type: Spontaneous
  Country: US (occurrence: US)
  Receive Date: 20180511
  Receipt Date: 20180511
  Transmission Date: 20180711
  Serious: No
  Sender: FDA-Public Use
  Company Number: US-009507513-1805USA004711

PATIENT
  Age: 63 Year
  Sex: Male

DRUGS (2)
  1. VANCOMYCIN [Concomitant]
     Active Substance: VANCOMYCIN
     Indication: LIVER ABSCESS
  2. INVANZ [Suspect]
     Active Substance: ERTAPENEM SODIUM
     Indication: LIVER ABSCESS
     Dosage: UNK

REACTIONS (1)
  - Product use in unapproved indication [Unknown]
